FAERS Safety Report 4658480-2 (Version None)
Quarter: 2005Q2

REPORT INFORMATION
  Report Type: 
  Country: None (occurrence: None)
  Receive Date: 20050511
  Receipt Date: 20050503
  Transmission Date: 20051028
  Serious: Yes (Hospitalization)
  Sender: FDA-Public Use
  Company Number: NL-GLAXOSMITHKLINE-B0380229A

PATIENT
  Age: 62 Year
  Sex: Female

DRUGS (9)
  1. BUPROPION HYDROCHLORIDE [Suspect]
     Dosage: 150MG PER DAY
     Route: 065
     Dates: start: 20050401, end: 20050418
  2. INSULIN ACTRAPID [Concomitant]
  3. METOPROLOL TARTRATE [Concomitant]
  4. OMEPRAZOLE [Concomitant]
     Dosage: 20MG PER DAY
  5. METFORMIN HCL [Concomitant]
     Dosage: 500MG TWICE PER DAY
  6. CALCIUM CARBASPIRIN [Concomitant]
     Dosage: 100MG PER DAY
  7. OXAZEPAM [Concomitant]
     Dosage: 10MG PER DAY
  8. SIMVASTATIN [Concomitant]
  9. ASPIRIN [Concomitant]

REACTIONS (3)
  - HYPERTENSION [None]
  - MICTURITION DISORDER [None]
  - VISION BLURRED [None]
